FAERS Safety Report 7680710-3 (Version None)
Quarter: 2011Q3

REPORT INFORMATION
  Report Type: 
  Country: None (occurrence: None)
  Receive Date: 20110812
  Receipt Date: 20110803
  Transmission Date: 20111222
  Serious: Yes (Other)
  Sender: FDA-Public Use
  Company Number: DE-BRISTOL-MYERS SQUIBB COMPANY-15421845

PATIENT
  Age: 48 Year
  Sex: Male

DRUGS (2)
  1. ASPIRIN [Concomitant]
     Dates: start: 20100412
  2. IPILIMUMAB [Suspect]
     Indication: METASTATIC MALIGNANT MELANOMA
     Route: 042
     Dates: start: 20101012

REACTIONS (5)
  - RASH [None]
  - PRURITUS [None]
  - TINNITUS [None]
  - DEAFNESS [None]
  - DIARRHOEA [None]
